FAERS Safety Report 9702892 (Version 1)
Quarter: 2013Q4

REPORT INFORMATION
  Report Type: Spontaneous
  Country: US (occurrence: None)
  Receive Date: 20131120
  Receipt Date: 20131120
  Transmission Date: 20140711
  Serious: Yes (Other)
  Sender: FDA-Public Use
  Company Number: 2013-US-003099

PATIENT
  Age: 78 Year
  Sex: Female

DRUGS (1)
  1. XYREM [Suspect]
     Indication: TREMOR
     Route: 048
     Dates: start: 201011

REACTIONS (2)
  - Leukaemia [None]
  - Hypoacusis [None]
